FAERS Safety Report 10994081 (Version 1)
Quarter: 2015Q2

REPORT INFORMATION
  Report Type: Spontaneous
  Country: US (occurrence: US)
  Receive Date: 20150407
  Receipt Date: 20150407
  Transmission Date: 20150821
  Serious: Yes (Other)
  Sender: FDA-Public Use
  Company Number: US-PFIZER INC-2015113684

PATIENT
  Age: 86 Year
  Sex: Female
  Weight: 59.86 kg

DRUGS (3)
  1. GABAPENTIN. [Suspect]
     Active Substance: GABAPENTIN
     Dosage: THREE 100 CAPSULE A DAY, ONE IN THE MORNING, ONE IN THE AFTERNOON, ONE AT NIGHT
     Dates: start: 201409
  2. NEURONTIN [Suspect]
     Active Substance: GABAPENTIN
     Indication: FEELING HOT
     Dosage: 100 MG, 3X/DAY
     Dates: start: 201409
  3. OMEPRAZOLE. [Concomitant]
     Active Substance: OMEPRAZOLE
     Dosage: UNK

REACTIONS (3)
  - Disorientation [Not Recovered/Not Resolved]
  - Feeling abnormal [Not Recovered/Not Resolved]
  - Drug dependence [Unknown]
